FAERS Safety Report 15344404 (Version 3)
Quarter: 2022Q2

REPORT INFORMATION
  Report Type: Spontaneous
  Country: GB (occurrence: GB)
  Receive Date: 20180903
  Receipt Date: 20220506
  Transmission Date: 20220721
  Serious: Yes (Other)
  Sender: FDA-Public Use
  Company Number: GB-PFIZER INC-2018347344

PATIENT
  Age: 81 Year
  Sex: Female

DRUGS (2)
  1. PALBOCICLIB [Suspect]
     Active Substance: PALBOCICLIB
     Indication: Breast cancer metastatic
     Dosage: 100 MG, CYCLIC (OD, CYCLE 1)
     Dates: start: 201711
  2. PALBOCICLIB [Suspect]
     Active Substance: PALBOCICLIB
     Dosage: 75 MG, CYCLIC (CYCLE 2)

REACTIONS (6)
  - Neutropenia [Recovered/Resolved]
  - Cellulitis [Recovering/Resolving]
  - Acute kidney injury [Recovered/Resolved]
  - Anaemia [Unknown]
  - Hypocalcaemia [Recovered/Resolved]
  - Neoplasm progression [Unknown]

NARRATIVE: CASE EVENT DATE: 20210201
